FAERS Safety Report 8782431 (Version 1)
Quarter: 2012Q4

REPORT INFORMATION
  Report Type: 
  Country: US (occurrence: US)
  Receive Date: 20120913
  Receipt Date: 20120913
  Transmission Date: 20130627
  Serious: Yes (Other)
  Sender: FDA-Public Use
  Company Number: US-JNJCP-30000127898

PATIENT
  Age: 80 Year
  Sex: Female
  Weight: 60 kg

DRUGS (3)
  1. NEUTROGENA ULTRA SHEER DRY TOUCH SUNBLOCK SPF55 [Suspect]
     Indication: PREVENTION
     Dosage: in an enough amount to cover face and neck, once a day
     Route: 061
     Dates: end: 20120829
  2. AMLODIPINE [Concomitant]
     Indication: BLOOD PRESSURE HIGH
     Dosage: once a day
  3. LEVOTHYROXINE [Concomitant]
     Indication: THYROID DISORDER
     Dosage: once a day

REACTIONS (3)
  - Skin cancer [Recovered/Resolved]
  - Product quality issue [Unknown]
  - Product expiration date issue [Unknown]
